FAERS Safety Report 10153948 (Version 1)
Quarter: 2014Q2

REPORT INFORMATION
  Report Type: Spontaneous
  Country: US (occurrence: US)
  Receive Date: 20140506
  Receipt Date: 20140506
  Transmission Date: 20141212
  Serious: No
  Sender: FDA-Public Use
  Company Number: US-SHIRE-US201401661

PATIENT
  Sex: Male
  Weight: 97.51 kg

DRUGS (9)
  1. LIALDA [Suspect]
     Indication: COLITIS ULCERATIVE
     Dosage: 2.4 G, 1X/DAY:QD
     Route: 048
     Dates: start: 20140314
  2. RAMIPRIL [Concomitant]
     Indication: HYPERTENSION
     Dosage: 5 MG, 1X/DAY:QD (IN PM)
     Route: 048
     Dates: start: 2004
  3. RAMIPRIL [Concomitant]
     Dosage: 10 MG, 1X/DAY:QD (IN AM)
     Route: 048
     Dates: start: 2004
  4. ATORVASTATIN [Concomitant]
     Indication: CARDIAC DISORDER
     Dosage: 5 MG, 1X/DAY:QD
     Route: 048
     Dates: start: 2004
  5. FLORASTOR [Concomitant]
     Indication: PROBIOTIC THERAPY
     Dosage: 250 MG, 1X/DAY:QD
     Route: 048
     Dates: start: 2010
  6. ASA [Concomitant]
     Indication: CARDIAC DISORDER
     Dosage: 81 MG, 1X/DAY:QD
     Route: 048
     Dates: start: 2004
  7. METFORMIN [Concomitant]
     Indication: DIABETES MELLITUS
     Dosage: 500 MG, 2X/DAY:BID
     Route: 048
     Dates: start: 2004
  8. WELCHOL [Concomitant]
     Indication: CONSTIPATION
     Dosage: 625 MG, 1X/DAY:QD
     Route: 048
     Dates: start: 2004
  9. MULTIVITAMIN                       /07504101/ [Concomitant]
     Indication: NUTRITIONAL SUPPLEMENTATION
     Dosage: 1 DF, 1X/DAY:QD
     Route: 048
     Dates: start: 2004

REACTIONS (3)
  - Drug ineffective [Not Recovered/Not Resolved]
  - Diarrhoea [Not Recovered/Not Resolved]
  - Product quality issue [Unknown]
